FAERS Safety Report 9717194 (Version 2)
Quarter: 2014Q1

REPORT INFORMATION
  Report Type: Spontaneous
  Country: US (occurrence: US)
  Receive Date: 20131127
  Receipt Date: 20140204
  Transmission Date: 20141002
  Serious: Yes (Hospitalization, Other)
  Sender: FDA-Public Use
  Company Number: US-JNJFOC-20131112183

PATIENT
  Sex: Male
  Weight: 54.7 kg

DRUGS (6)
  1. REMICADE [Suspect]
     Indication: CROHN^S DISEASE
     Dosage: RECEIVED A TOTAL OF FIVE INFUSIONS
     Route: 042
     Dates: start: 201201, end: 201206
  2. SINEMET [Concomitant]
     Indication: PARKINSON^S DISEASE
     Route: 065
  3. KLONOPIN [Concomitant]
     Indication: ANXIETY
     Route: 065
  4. REMERON [Concomitant]
     Indication: DEPRESSION
     Route: 065
  5. TRAZODONE [Concomitant]
     Indication: DEPRESSION
     Route: 065
  6. CHOLESTYRAMINE [Concomitant]
     Indication: DIARRHOEA
     Route: 065

REACTIONS (2)
  - Mycobacterium avium complex infection [Not Recovered/Not Resolved]
  - Pneumonia [Unknown]
